FAERS Safety Report 11659764 (Version 2)
Quarter: 2015Q4

REPORT INFORMATION
  Report Type: Spontaneous
  Country: US (occurrence: US)
  Receive Date: 20151026
  Receipt Date: 20151210
  Transmission Date: 20160304
  Serious: Yes (Hospitalization, Other)
  Sender: FDA-Public Use
  Company Number: US-PFIZER INC-2015350691

PATIENT
  Age: 40 Year
  Sex: Female
  Weight: 70 kg

DRUGS (1)
  1. LYRICA [Suspect]
     Active Substance: PREGABALIN
     Indication: FIBROMYALGIA
     Dosage: 300 MG, 2X/DAY
     Route: 048
     Dates: start: 2008

REACTIONS (7)
  - Pain [Recovering/Resolving]
  - Loss of consciousness [Unknown]
  - Thermal burn [Recovered/Resolved with Sequelae]
  - Wound haemorrhage [Recovered/Resolved]
  - Burns second degree [Recovered/Resolved]
  - Respiratory fume inhalation disorder [Recovered/Resolved with Sequelae]
  - Burning sensation [Recovering/Resolving]

NARRATIVE: CASE EVENT DATE: 20151004
